FAERS Safety Report 10408985 (Version 1)
Quarter: 2014Q3

REPORT INFORMATION
  Report Type: Spontaneous
  Country: US (occurrence: None)
  Receive Date: 20140825
  Receipt Date: 20140825
  Transmission Date: 20150326
  Serious: No
  Sender: FDA-Public Use
  Company Number: None

PATIENT
  Age: 26 Year
  Sex: Female
  Weight: 95.26 kg

DRUGS (1)
  1. LYRICA [Suspect]
     Active Substance: PREGABALIN
     Dosage: THREE TIMES DAILY TAKEN BY MOUTH
     Route: 048
     Dates: start: 20140212, end: 20140227

REACTIONS (3)
  - Hypoacusis [None]
  - Ear discomfort [None]
  - Tinnitus [None]

NARRATIVE: CASE EVENT DATE: 20140227
